FAERS Safety Report 7372722-4 (Version None)
Quarter: 2011Q1

REPORT INFORMATION
  Report Type: 
  Country: None (occurrence: None)
  Receive Date: 20110315
  Receipt Date: 20110228
  Transmission Date: 20110831
  Serious: Yes (Hospitalization)
  Sender: FDA-Public Use
  Company Number: DSM-2010-01777

PATIENT
  Sex: Female

DRUGS (5)
  1. OMESAR (OLMESATAN MEDOXOMIL) (TABLET) (OLMESATAN MEDOXOMIL) [Suspect]
     Indication: HYPERTENSION
     Dosage: 20 MG, ORAL
     Route: 048
  2. COVERSYL (PERINDOPRIL) (PERINDOPRIL) [Suspect]
     Indication: PRODUCT USED FOR UNKNOWN INDICATION
  3. ESOMEPRAZLE (ESOMEPRAZOLE) (ESOMEPRAZOLE) [Suspect]
     Indication: PRODUCT USED FOR UNKNOWN INDICATION
     Dosage: 20 MG
  4. NEBILET (NEBIVOLOL HYDROCHLORIDE) (NEBIVOLOL HYDROCHLORIDE) [Suspect]
     Indication: PRODUCT USED FOR UNKNOWN INDICATION
     Dosage: 5 MG
  5. ISPAGHULA HUSK (PLANTAGO OVATA HUSK) (PLANTAGO OVATA HUSK) [Suspect]
     Indication: PRODUCT USED FOR UNKNOWN INDICATION

REACTIONS (1)
  - GASTRITIS [None]
